FAERS Safety Report 24192939 (Version 2)
Quarter: 2024Q3

REPORT INFORMATION
  Report Type: Report from Study
  Country: PE (occurrence: PE)
  Receive Date: 20240809
  Receipt Date: 20240813
  Transmission Date: 20241016
  Serious: Yes (Death, Hospitalization, Other)
  Sender: NOVARTIS
  Company Number: PE-002147023-NVSC2023PE273023

PATIENT
  Sex: Female

DRUGS (1)
  1. KISQALI [Suspect]
     Active Substance: RIBOCICLIB
     Indication: Breast cancer metastatic
     Dosage: 600 MG, QD
     Route: 048
     Dates: start: 20231120

REACTIONS (14)
  - Death [Fatal]
  - Speech disorder [Unknown]
  - Malaise [Unknown]
  - Dyschezia [Unknown]
  - Dyspnoea [Unknown]
  - Metastases to spine [Unknown]
  - Gait inability [Unknown]
  - Fatigue [Unknown]
  - Spinal pain [Unknown]
  - Coccydynia [Unknown]
  - Nausea [Not Recovered/Not Resolved]
  - Haemoglobin decreased [Unknown]
  - Back pain [Recovering/Resolving]
  - Bone pain [Recovering/Resolving]

NARRATIVE: CASE EVENT DATE: 20230101
